FAERS Safety Report 19114728 (Version 1)
Quarter: 2021Q2

REPORT INFORMATION
  Report Type: Spontaneous
  Country: US (occurrence: US)
  Receive Date: 20210409
  Receipt Date: 20210409
  Transmission Date: 20210717
  Serious: No
  Sender: FDA-Public Use
  Company Number: US-PFIZER INC-2020022536

PATIENT
  Age: 53 Year
  Sex: Female

DRUGS (5)
  1. XELJANZ [Suspect]
     Active Substance: TOFACITINIB CITRATE
     Indication: CROHN^S DISEASE
     Dosage: 11 MG, 2X/DAY
     Route: 048
     Dates: start: 202002
  2. MAGNESIUM [Concomitant]
     Active Substance: MAGNESIUM
  3. B12 ACTIVE [Concomitant]
  4. PEPCID [Concomitant]
     Active Substance: FAMOTIDINE
  5. POTASSIUM 99 [Concomitant]
     Active Substance: POTASSIUM

REACTIONS (1)
  - Off label use [Unknown]

NARRATIVE: CASE EVENT DATE: 202002
